FAERS Safety Report 5128378-4 (Version None)
Quarter: 2006Q4

REPORT INFORMATION
  Report Type: 
  Country: None (occurrence: None)
  Receive Date: 20061017
  Receipt Date: 20060927
  Transmission Date: 20070319
  Serious: Yes (Life-Threatening, Hospitalization, Other)
  Sender: FDA-Public Use
  Company Number: PHBS2006JP15028

PATIENT
  Age: 64 Year
  Sex: Female

DRUGS (8)
  1. METHOTREXATE [Concomitant]
     Indication: STEM CELL TRANSPLANT
     Dosage: SHORT-TERM
     Route: 065
     Dates: start: 20051101
  2. PREDNISOLONE [Concomitant]
     Indication: STEM CELL TRANSPLANT
     Route: 048
  3. DRUG THERAPY NOS [Concomitant]
     Indication: ABSCESS
  4. CYCLOSPORINE [Suspect]
     Indication: STEM CELL TRANSPLANT
     Dosage: UNK, UNK
     Route: 065
     Dates: start: 20051101
  5. CYCLOSPORINE [Suspect]
     Route: 048
  6. FLUDARABINE [Concomitant]
  7. BUSULFAN [Concomitant]
  8. MELPHALAN [Concomitant]

REACTIONS (12)
  - BLISTER [None]
  - DYSPNOEA [None]
  - EYELID OEDEMA [None]
  - FACE OEDEMA [None]
  - GRAFT VERSUS HOST DISEASE [None]
  - HERPES ZOSTER [None]
  - INTUBATION [None]
  - LIFE SUPPORT [None]
  - LOCAL SWELLING [None]
  - PAIN [None]
  - PHARYNGEAL OEDEMA [None]
  - VIRAL DNA TEST POSITIVE [None]
